FAERS Safety Report 5594395-3 (Version None)
Quarter: 2008Q1

REPORT INFORMATION
  Report Type: 
  Country: None (occurrence: None)
  Receive Date: 20080117
  Receipt Date: 20080110
  Transmission Date: 20080703
  Serious: Yes (Hospitalization)
  Sender: FDA-Public Use
  Company Number: JP-JNJFOC-20071200858

PATIENT
  Sex: Female
  Weight: 60 kg

DRUGS (16)
  1. REMICADE [Suspect]
     Route: 042
  2. REMICADE [Suspect]
     Route: 042
  3. REMICADE [Suspect]
     Route: 042
  4. REMICADE [Suspect]
     Indication: RHEUMATOID ARTHRITIS
     Route: 042
  5. METHOTREXATE [Suspect]
     Indication: RHEUMATOID ARTHRITIS
     Route: 048
  6. PREDNISOLONE [Suspect]
     Indication: DRUG USE FOR UNKNOWN INDICATION
     Route: 048
  7. ISONIAZID [Concomitant]
  8. ISONIAZID [Concomitant]
     Indication: TUBERCULOSIS
  9. RIFAMPICIN [Concomitant]
  10. RIFAMPICIN [Concomitant]
     Indication: TUBERCULOSIS
  11. ETHAMBUTOL HCL [Concomitant]
  12. ETHAMBUTOL HCL [Concomitant]
     Indication: TUBERCULOSIS
  13. PYRAZINAMIDE [Concomitant]
     Indication: TUBERCULOSIS
  14. SULFAMETHOXAZOLE AND TRIMETHOPRIM [Concomitant]
     Indication: PROPHYLAXIS
  15. LEVOFLOXACIN [Concomitant]
  16. SM [Concomitant]

REACTIONS (4)
  - DISSEMINATED TUBERCULOSIS [None]
  - HEPATIC FUNCTION ABNORMAL [None]
  - INFUSION RELATED REACTION [None]
  - OXYGEN SATURATION DECREASED [None]
